FAERS Safety Report 8694659 (Version 2)
Quarter: 2013Q4

REPORT INFORMATION
  Report Type: Spontaneous
  Country: GB (occurrence: GB)
  Receive Date: 20120731
  Receipt Date: 20131108
  Transmission Date: 20140711
  Serious: Yes (Other)
  Sender: FDA-Public Use
  Company Number: GB-MSD-1207GBR009720

PATIENT
  Age: 36 Year
  Sex: Male
  Weight: 126 kg

DRUGS (5)
  1. ZOCOR [Suspect]
     Indication: DIABETES MELLITUS
     Dosage: 20 MG, BID
     Route: 048
     Dates: start: 20120528, end: 20120610
  2. OMEGA-3 MARINE TRIGLYCERIDES [Interacting]
  3. DIAMICRON MR [Concomitant]
  4. FEXOFENADINE HYDROCHLORIDE [Concomitant]
  5. GLUCOPHAGE [Concomitant]

REACTIONS (10)
  - Vision blurred [Recovering/Resolving]
  - Drug interaction [Recovered/Resolved]
  - Dry eye [Unknown]
  - Eye swelling [Unknown]
  - Hyperglycaemia [Recovered/Resolved]
  - Eye pruritus [Unknown]
  - Diarrhoea [Recovered/Resolved]
  - Dizziness [Recovered/Resolved with Sequelae]
  - Headache [Recovered/Resolved]
  - Nausea [Recovered/Resolved]
